FAERS Safety Report 9964973 (Version 1)
Quarter: 2014Q1

REPORT INFORMATION
  Report Type: Report from Study
  Country: US (occurrence: US)
  Receive Date: 20140305
  Receipt Date: 20140305
  Transmission Date: 20141002
  Serious: No
  Sender: FDA-Public Use
  Company Number: US-ABBVIE-13P-163-1128513-00

PATIENT
  Sex: Female

DRUGS (5)
  1. HUMIRA [Suspect]
     Indication: COLITIS ULCERATIVE
     Dates: start: 20130618, end: 20130618
  2. HUMIRA [Suspect]
     Dates: start: 20130702, end: 20130702
  3. HUMIRA [Suspect]
     Dates: start: 20130716, end: 20130730
  4. BIOTIN [Concomitant]
     Indication: ALOPECIA
  5. ZINC [Concomitant]
     Indication: ALOPECIA

REACTIONS (1)
  - Alopecia [Not Recovered/Not Resolved]
